FAERS Safety Report 7589265-5 (Version None)
Quarter: 2011Q3

REPORT INFORMATION
  Report Type: 
  Country: None (occurrence: None)
  Receive Date: 20110705
  Receipt Date: 20110622
  Transmission Date: 20111222
  Serious: Yes (Other)
  Sender: FDA-Public Use
  Company Number: US-PFIZER INC-US-WYE-H03874808

PATIENT
  Sex: Female

DRUGS (3)
  1. ESTRATEST [Suspect]
     Dosage: NOT PROVIDED
     Route: 048
     Dates: start: 20000101, end: 20000101
  2. PREMPRO [Suspect]
     Dosage: DOSE NOT PROVIDED
     Route: 048
     Dates: start: 19980101, end: 20000101
  3. PROVERA [Suspect]
     Dosage: UNK

REACTIONS (1)
  - BREAST CANCER FEMALE [None]
